FAERS Safety Report 4996907-7 (Version None)
Quarter: 2006Q2

REPORT INFORMATION
  Report Type: 
  Country: None (occurrence: None)
  Receive Date: 20060509
  Receipt Date: 20060331
  Transmission Date: 20061013
  Serious: Yes (Life-Threatening, Hospitalization, Other)
  Sender: FDA-Public Use
  Company Number: BE-GLAXOSMITHKLINE-B0419884A

PATIENT
  Age: 71 Year
  Sex: Male
  Weight: 88 kg

DRUGS (14)
  1. AVANDIA [Suspect]
     Indication: DIABETES MELLITUS NON-INSULIN-DEPENDENT
     Dosage: 8MG PER DAY
     Route: 048
     Dates: start: 20050105, end: 20060221
  2. METFORMIN [Concomitant]
     Indication: DIABETES MELLITUS NON-INSULIN-DEPENDENT
     Route: 065
  3. CALCIUM ANTAGONIST [Concomitant]
     Route: 065
  4. GLURENORM [Concomitant]
     Route: 065
  5. NOVONORM [Concomitant]
     Indication: DIABETES MELLITUS NON-INSULIN-DEPENDENT
     Dosage: 2MG THREE TIMES PER DAY
     Route: 048
     Dates: start: 20050802, end: 20060117
  6. GLUCOPHAGE [Concomitant]
     Indication: DIABETES MELLITUS NON-INSULIN-DEPENDENT
     Dosage: 850MG TWICE PER DAY
     Route: 048
     Dates: start: 20020415, end: 20060309
  7. ATACAND [Concomitant]
     Indication: HYPERTENSION
     Dosage: 16MG PER DAY
     Route: 048
     Dates: start: 20040908
  8. SPIRONOLACTONE [Concomitant]
     Indication: HYPERTENSION
     Dosage: 25MG PER DAY
     Route: 048
     Dates: start: 20050215
  9. AMLODIPINE [Concomitant]
     Indication: HYPERTENSION
     Dosage: 5MG PER DAY
     Route: 048
     Dates: start: 20040525, end: 20060221
  10. LIPITOR [Concomitant]
     Indication: HYPERCHOLESTEROLAEMIA
     Dosage: 40MG PER DAY
     Route: 048
     Dates: start: 20020723
  11. FLUDEX [Concomitant]
     Indication: OEDEMA PERIPHERAL
     Dosage: 2.5MG PER DAY
     Route: 048
     Dates: start: 20041108, end: 20050218
  12. LASIX [Concomitant]
     Indication: OEDEMA PERIPHERAL
     Dosage: 20MG PER DAY
     Route: 048
     Dates: start: 20050125, end: 20050218
  13. MOLSIDOMINE [Concomitant]
     Dosage: 16MG PER DAY
     Route: 048
     Dates: start: 20040908, end: 20050218
  14. OMEPRAZOLE [Concomitant]
     Indication: OESOPHAGITIS
     Dosage: 20MG PER DAY
     Route: 048
     Dates: start: 20041105

REACTIONS (11)
  - ACUTE PULMONARY OEDEMA [None]
  - CARDIAC FAILURE CONGESTIVE [None]
  - CARDIAC VALVE DISEASE [None]
  - DIASTOLIC DYSFUNCTION [None]
  - DILATATION ATRIAL [None]
  - GENERALISED OEDEMA [None]
  - ILEUS [None]
  - INFLAMMATION [None]
  - LUNG INFILTRATION [None]
  - OEDEMA PERIPHERAL [None]
  - VENTRICULAR HYPERTROPHY [None]
